FAERS Safety Report 4589885-6 (Version None)
Quarter: 2005Q1

REPORT INFORMATION
  Report Type: 
  Country: None (occurrence: None)
  Receive Date: 20050223
  Receipt Date: 20050215
  Transmission Date: 20050727
  Serious: Yes (Other)
  Sender: FDA-Public Use
  Company Number: CA-MERCK-0502CAN00121

PATIENT
  Age: 40 Year
  Sex: Female

DRUGS (1)
  1. VIOXX [Suspect]
     Indication: JOINT INJURY
     Route: 048
     Dates: start: 20010712

REACTIONS (1)
  - MYOCARDIAL INFARCTION [None]
